FAERS Safety Report 20043129 (Version 3)
Quarter: 2022Q1

REPORT INFORMATION
  Report Type: Report from Study
  Country: FR (occurrence: FR)
  Receive Date: 20211108
  Receipt Date: 20220215
  Transmission Date: 20220423
  Serious: Yes (Disabling)
  Sender: FDA-Public Use
  Company Number: FR-NOVARTISPH-NVSC2021FR251712

PATIENT
  Age: 70 Year
  Sex: Male

DRUGS (16)
  1. ELTROMBOPAG [Suspect]
     Active Substance: ELTROMBOPAG
     Indication: Allogenic stem cell transplantation
     Dosage: 50 MG, QD
     Route: 048
     Dates: start: 20210905
  2. ELTROMBOPAG [Suspect]
     Active Substance: ELTROMBOPAG
     Dosage: UNK
     Route: 048
     Dates: start: 20211020, end: 20211027
  3. NEORAL [Concomitant]
     Active Substance: CYCLOSPORINE
     Indication: Prophylaxis against graft versus host disease
     Dosage: 70 MG X2/DAY
     Route: 048
     Dates: start: 202105
  4. SOLUPRED [Concomitant]
     Indication: Product used for unknown indication
     Dosage: 5 MG/ 2DAYS
     Route: 048
     Dates: start: 202106
  5. VALACYCLOVIR HYDROCHLORIDE [Concomitant]
     Active Substance: VALACYCLOVIR HYDROCHLORIDE
     Indication: Infection prophylaxis
     Dosage: 500 MG X2/DAY
     Route: 048
     Dates: start: 202009
  6. PENICILLIN V [Concomitant]
     Active Substance: PENICILLIN V
     Indication: Infection prophylaxis
     Dosage: 1000000 UI X2/DAY
     Route: 048
     Dates: start: 202106
  7. LEUCOVORIN CALCIUM [Concomitant]
     Active Substance: LEUCOVORIN CALCIUM
     Indication: Haematotoxicity
     Dosage: 25 MG/ WEEK
     Route: 048
     Dates: start: 202106
  8. URSODIOL [Concomitant]
     Active Substance: URSODIOL
     Indication: Prophylaxis
     Dosage: 500 MG X2/DAY
     Route: 048
     Dates: start: 202106
  9. MAG [Concomitant]
     Indication: Prophylaxis
     Dosage: 2X2/DAY
     Route: 048
     Dates: start: 202106
  10. IMOVANE [Concomitant]
     Active Substance: ZOPICLONE
     Indication: Insomnia
     Dosage: 7.5 MG, QD
     Route: 048
     Dates: start: 202106
  11. CALCIDOSE [Concomitant]
     Indication: Prophylaxis
     Dosage: 500 1/DAY
     Route: 048
     Dates: start: 202106
  12. CHOLECALCIFEROL [Concomitant]
     Active Substance: CHOLECALCIFEROL
     Indication: Vitamin supplementation
     Dosage: 1 DROP/MONTH
     Route: 048
     Dates: start: 202106
  13. RAMIPRIL [Concomitant]
     Active Substance: RAMIPRIL
     Indication: Hypertension
     Dosage: 5 MG, QD
     Route: 048
     Dates: start: 202106
  14. LANTUS [Concomitant]
     Active Substance: INSULIN GLARGINE
     Indication: Diabetes mellitus
     Dosage: 6 UI/DAY
     Route: 058
     Dates: start: 202106
  15. ZOPICLONE [Concomitant]
     Active Substance: ZOPICLONE
     Indication: Insomnia
     Dosage: 7.5 MG, QD
     Route: 048
     Dates: start: 202107
  16. POTASSIUM CHLORIDE [Concomitant]
     Active Substance: POTASSIUM CHLORIDE
     Indication: Prophylaxis
     Dosage: X3/DAY
     Route: 048
     Dates: start: 202108

REACTIONS (1)
  - Toxic skin eruption [Not Recovered/Not Resolved]

NARRATIVE: CASE EVENT DATE: 20211006
